FAERS Safety Report 6894244-7 (Version None)
Quarter: 2010Q3

REPORT INFORMATION
  Report Type: 
  Country: None (occurrence: None)
  Receive Date: 20100728
  Receipt Date: 20100713
  Transmission Date: 20110219
  Serious: No
  Sender: FDA-Public Use
  Company Number: THQ2010A01567

PATIENT
  Age: 55 Year
  Sex: Male

DRUGS (2)
  1. PIOGLITAZONE HCL [Suspect]
     Indication: TYPE 2 DIABETES MELLITUS
     Dosage: PER ORAL
     Route: 048
     Dates: start: 20090513
  2. H80-MC-GWCH PH III LAR MONO (CODE NOT BROKEN) (ANTI-DIABETICS) [Suspect]
     Indication: TYPE 2 DIABETES MELLITUS
     Dosage: INJECTION
     Dates: start: 20090512

REACTIONS (8)
  - ANAEMIA [None]
  - HEPATOMEGALY [None]
  - HYPERGAMMAGLOBULINAEMIA [None]
  - HYPOALBUMINAEMIA [None]
  - LYMPHADENOPATHY [None]
  - MELAENA [None]
  - OESOPHAGITIS [None]
  - WEIGHT DECREASED [None]
